FAERS Safety Report 4580005-0 (Version None)
Quarter: 2005Q1

REPORT INFORMATION
  Report Type: 
  Country: None (occurrence: None)
  Receive Date: 20050210
  Receipt Date: 20050129
  Transmission Date: 20050727
  Serious: Yes (Other)
  Sender: FDA-Public Use
  Company Number: 2004121704

PATIENT
  Age: 6 Year
  Sex: Male
  Weight: 38.5557 kg

DRUGS (3)
  1. ZYRTEC [Suspect]
     Indication: ALLERGY TO ANIMAL
     Dosage: ORAL
     Route: 048
     Dates: start: 20030101, end: 20030101
  2. BENADRYL [Suspect]
     Indication: ECZEMA
     Dosage: ORAL
     Route: 048
     Dates: start: 20010101, end: 20030101
  3. ANTIBIOTICS (ANTIBIOTICS) [Concomitant]

REACTIONS (6)
  - ACCIDENT [None]
  - CONCUSSION [None]
  - FACE OEDEMA [None]
  - HYPOVENTILATION [None]
  - LOSS OF CONSCIOUSNESS [None]
  - MEDICATION ERROR [None]
